FAERS Safety Report 7929891 (Version 4)
Quarter: 2013Q3

REPORT INFORMATION
  Report Type: Spontaneous
  Country: US (occurrence: US)
  Receive Date: 20110504
  Receipt Date: 20130719
  Transmission Date: 20140515
  Serious: Yes (Hospitalization, Other)
  Sender: FDA-Public Use
  Company Number: US-ROCHE-743243

PATIENT
  Age: 20 Year
  Sex: Male
  Weight: 68.5 kg

DRUGS (1)
  1. ACCUTANE [Suspect]
     Indication: ACNE
     Route: 065
     Dates: start: 19960101, end: 1997

REACTIONS (6)
  - Crohn^s disease [Unknown]
  - Intestinal obstruction [Unknown]
  - Gastrointestinal injury [Unknown]
  - Inflammatory bowel disease [Unknown]
  - Depression [Recovering/Resolving]
  - Irritable bowel syndrome [Unknown]
